FAERS Safety Report 15126664 (Version 2)
Quarter: 2018Q3

REPORT INFORMATION
  Report Type: Spontaneous
  Country: SK (occurrence: SK)
  Receive Date: 20180710
  Receipt Date: 20180725
  Transmission Date: 20181010
  Serious: Yes (Life-Threatening, Hospitalization, Other)
  Sender: FDA-Public Use
  Company Number: PHHY2018SK035045

PATIENT
  Age: 4 Year
  Sex: Male

DRUGS (7)
  1. TRAMADOL. [Interacting]
     Active Substance: TRAMADOL
     Indication: TETANUS
     Dosage: UNK
     Route: 065
  2. TRAMADOL. [Interacting]
     Active Substance: TRAMADOL
     Indication: MUSCLE SPASMS
  3. DIAZEPAM. [Interacting]
     Active Substance: DIAZEPAM
     Indication: TETANUS
     Dosage: UNK
     Route: 065
  4. DIAZEPAM. [Interacting]
     Active Substance: DIAZEPAM
     Indication: MUSCLE SPASMS
  5. MIDAZOLAM [Interacting]
     Active Substance: MIDAZOLAM HYDROCHLORIDE
     Indication: TETANUS
     Dosage: UNK
     Route: 065
  6. CLINDAMYCIN. [Suspect]
     Active Substance: CLINDAMYCIN
     Indication: TETANUS
     Dosage: UNK
     Route: 065
  7. MIDAZOLAM [Interacting]
     Active Substance: MIDAZOLAM HYDROCHLORIDE
     Indication: MUSCLE SPASMS

REACTIONS (2)
  - Drug interaction [Unknown]
  - Respiratory failure [Recovered/Resolved]
